FAERS Safety Report 7606273-6 (Version None)
Quarter: 2011Q3

REPORT INFORMATION
  Report Type: 
  Country: None (occurrence: None)
  Receive Date: 20110705
  Receipt Date: 20110620
  Transmission Date: 20111222
  Serious: Yes (Death, Life-Threatening, Other)
  Sender: FDA-Public Use
  Company Number: 2011MA007790

PATIENT
  Age: 52 Year
  Sex: Male

DRUGS (4)
  1. VENLAFAXINE HYDROCHLORIDE [Suspect]
     Indication: OVERDOSE
  2. ACETAMINOPHEN [Suspect]
     Indication: OVERDOSE
  3. THC [Suspect]
     Indication: OVERDOSE
  4. OPIATE [Suspect]
     Indication: OVERDOSE

REACTIONS (7)
  - DRUG SCREEN POSITIVE [None]
  - CONVULSION [None]
  - BLOOD PRESSURE INCREASED [None]
  - SINUS TACHYCARDIA [None]
  - OVERDOSE [None]
  - CARDIOTOXICITY [None]
  - HYPERREFLEXIA [None]
